FAERS Safety Report 11204741 (Version 1)
Quarter: 2015Q2

REPORT INFORMATION
  Report Type: Spontaneous
  Country: KR (occurrence: KR)
  Receive Date: 20150622
  Receipt Date: 20150622
  Transmission Date: 20150821
  Serious: Yes (Hospitalization)
  Sender: FDA-Public Use
  Company Number: KR-AMGEN-KORCT2015060844

PATIENT
  Age: 38 Year
  Sex: Female

DRUGS (17)
  1. G-LASTA [Suspect]
     Active Substance: PEGFILGRASTIM
     Dosage: 6 MG, Q3WK
     Route: 058
     Dates: start: 20150515
  2. PRIVITUSS [Concomitant]
     Dosage: 8 ML, UNK
     Route: 048
     Dates: start: 20150514, end: 20150516
  3. DOCETAXEL. [Concomitant]
     Active Substance: DOCETAXEL
     Dosage: 132 MG, UNK
     Route: 042
     Dates: start: 20150514, end: 20150514
  4. MAGMIL [Concomitant]
     Active Substance: MAGNESIUM HYDROXIDE
     Dosage: 500 MG, UNK
     Route: 048
     Dates: start: 20150424, end: 20150428
  5. DOCETAXEL. [Concomitant]
     Active Substance: DOCETAXEL
     Dosage: 132.75 MG, UNK
     Route: 042
     Dates: start: 20150424, end: 20150424
  6. DOXORUBICIN [Concomitant]
     Active Substance: DOXORUBICIN
     Dosage: 88 MG, UNK
     Route: 042
     Dates: start: 20150514, end: 20150514
  7. GALVUSMET [Concomitant]
     Dosage: 1TAB
     Route: 048
     Dates: start: 20150423
  8. GABAPENTIN. [Concomitant]
     Active Substance: GABAPENTIN
     Dosage: 100 MG, UNK
     Route: 048
     Dates: start: 20150424
  9. CYCLOPHOSPHAMIDE. [Concomitant]
     Active Substance: CYCLOPHOSPHAMIDE
     Dosage: 880 MG, UNK
     Route: 042
     Dates: start: 20150514, end: 20150514
  10. G-LASTA [Suspect]
     Active Substance: PEGFILGRASTIM
     Indication: NEUTROPENIA
     Dosage: 6 MG, Q3WK
     Route: 058
     Dates: start: 20150425
  11. BARACLUDE [Concomitant]
     Active Substance: ENTECAVIR
     Dosage: 0.5 MG, UNK
     Route: 048
     Dates: start: 20150423
  12. DOXORUBICIN [Concomitant]
     Active Substance: DOXORUBICIN
     Dosage: 88.5 MG, UNK
     Route: 042
     Dates: start: 20150424, end: 20150424
  13. MICARDIS PLUS [Concomitant]
     Active Substance: HYDROCHLOROTHIAZIDE\TELMISARTAN
     Dosage: 1TAB
     Route: 048
     Dates: start: 20150423
  14. CYCLOPHOSPHAMIDE. [Concomitant]
     Active Substance: CYCLOPHOSPHAMIDE
     Dosage: 885 MG, UNK
     Route: 042
     Dates: start: 20150424, end: 20150424
  15. SANCUSO [Concomitant]
     Active Substance: GRANISETRON
     Dosage: 34.3 MG, UNK
     Route: 061
     Dates: start: 20150423
  16. MYONAL                             /00287502/ [Concomitant]
     Active Substance: EPERISONE HYDROCHLORIDE
     Dosage: 50 MG, UNK
     Route: 048
     Dates: start: 20150514
  17. AMBRECT [Concomitant]
     Dosage: 30 MG, UNK
     Route: 048
     Dates: start: 20150514, end: 20150516

REACTIONS (1)
  - Neutropenia [Recovered/Resolved]

NARRATIVE: CASE EVENT DATE: 20150523
